FAERS Safety Report 18126794 (Version 3)
Quarter: 2020Q4

REPORT INFORMATION
  Report Type: Report from Study
  Country: None (occurrence: US)
  Receive Date: 20200809
  Receipt Date: 20201028
  Transmission Date: 20210113
  Serious: Yes (Other)
  Sender: FDA-Public Use
  Company Number: US-ABBVIE-20K-163-3516113-00

PATIENT
  Age: 56 Year
  Sex: Male

DRUGS (3)
  1. RINVOQ [Suspect]
     Active Substance: UPADACITINIB
     Route: 048
     Dates: start: 2020, end: 2020
  2. RINVOQ [Suspect]
     Active Substance: UPADACITINIB
     Route: 048
     Dates: start: 20200610
  3. RINVOQ [Suspect]
     Active Substance: UPADACITINIB
     Indication: RHEUMATOID ARTHRITIS
     Route: 048
     Dates: start: 20200228, end: 2020

REACTIONS (13)
  - Carpal tunnel syndrome [Unknown]
  - Sciatica [Not Recovered/Not Resolved]
  - Hernia perforation [Recovered/Resolved]
  - Arthralgia [Unknown]
  - Aortic valve incompetence [Unknown]
  - Surgery [Recovered/Resolved]
  - Procedural pain [Unknown]
  - Intervertebral disc protrusion [Not Recovered/Not Resolved]
  - Spinal operation [Unknown]
  - Neuropathy peripheral [Unknown]
  - Cartilage injury [Unknown]
  - Hypoaesthesia [Unknown]
  - Arthralgia [Recovered/Resolved]

NARRATIVE: CASE EVENT DATE: 2020
